FAERS Safety Report 24393319 (Version 1)
Quarter: 2024Q4

REPORT INFORMATION
  Report Type: Spontaneous
  Country: US (occurrence: US)
  Receive Date: 20241003
  Receipt Date: 20241003
  Transmission Date: 20250114
  Serious: No
  Sender: HARMONY BIOSCIENCES
  Company Number: US-HARMONY BIOSCIENCES-2023HMY01750

PATIENT

DRUGS (8)
  1. WAKIX [Suspect]
     Active Substance: PITOLISANT HYDROCHLORIDE
     Indication: Narcolepsy
     Dosage: 8.9 MG, 1X/DAY
     Dates: start: 20230922, end: 20230928
  2. WAKIX [Suspect]
     Active Substance: PITOLISANT HYDROCHLORIDE
     Indication: Narcolepsy
     Dosage: 17.8 MG, 1X/DAY
     Dates: start: 20230929
  3. SUNOSI [Concomitant]
     Active Substance: SOLRIAMFETOL
     Dosage: 75 MG, 1X/DAY
  4. BACLOFEN [Concomitant]
     Active Substance: BACLOFEN
     Dosage: 10 MG, 1X/DAY EVERY EVENING
  5. LEXAPRO [Concomitant]
     Active Substance: ESCITALOPRAM OXALATE
     Dosage: 20 MG, 1X/DAY
  6. .ALPHA.-TOCOPHEROL [Concomitant]
     Active Substance: .ALPHA.-TOCOPHEROL
  7. VITAMINS NOS [Concomitant]
     Active Substance: VITAMINS
     Dosage: UNK, 1X/DAY
  8. IRON [Concomitant]
     Active Substance: IRON
     Dosage: UNK, 1X/DAY

REACTIONS (4)
  - Dizziness [Not Recovered/Not Resolved]
  - Vision blurred [Not Recovered/Not Resolved]
  - Abdominal discomfort [Not Recovered/Not Resolved]
  - Nausea [Not Recovered/Not Resolved]

NARRATIVE: CASE EVENT DATE: 20230929
